FAERS Safety Report 5178966-4 (Version None)
Quarter: 2006Q4

REPORT INFORMATION
  Report Type: 
  Country: None (occurrence: None)
  Receive Date: 20061213
  Receipt Date: 20061213
  Transmission Date: 20070319
  Serious: Yes (Other)
  Sender: FDA-Public Use
  Company Number: None

PATIENT
  Age: 80 Year
  Sex: Male
  Weight: 79.3795 kg

DRUGS (6)
  1. ADVAIR DISKUS 100/50 [Suspect]
     Indication: ASTHMA
     Dosage: 1 INHALATION   TWICE DAILY
     Dates: start: 20051101, end: 20061201
  2. ADVAIR DISKUS 100/50 [Suspect]
     Indication: CHRONIC OBSTRUCTIVE PULMONARY DISEASE
     Dosage: 1 INHALATION   TWICE DAILY
     Dates: start: 20051101, end: 20061201
  3. ADVAIR DISKUS 100/50 [Suspect]
     Indication: RHINITIS ALLERGIC
     Dosage: 1 INHALATION   TWICE DAILY
     Dates: start: 20051101, end: 20061201
  4. ADVAIR DISKUS 100/50 [Suspect]
     Indication: ASTHMA
     Dosage: 1 INHALATION   TWICE DAILY
     Dates: start: 20060101, end: 20061201
  5. ADVAIR DISKUS 100/50 [Suspect]
     Indication: CHRONIC OBSTRUCTIVE PULMONARY DISEASE
     Dosage: 1 INHALATION   TWICE DAILY
     Dates: start: 20060101, end: 20061201
  6. ADVAIR DISKUS 100/50 [Suspect]
     Indication: RHINITIS ALLERGIC
     Dosage: 1 INHALATION   TWICE DAILY
     Dates: start: 20060101, end: 20061201

REACTIONS (1)
  - ARTHRITIS [None]
